FAERS Safety Report 7767862-1 (Version None)
Quarter: 2011Q3

REPORT INFORMATION
  Report Type: 
  Country: None (occurrence: None)
  Receive Date: 20110922
  Receipt Date: 20101004
  Transmission Date: 20111222
  Serious: No
  Sender: FDA-Public Use
  Company Number: US-ASTRAZENECA-2010SE46612

PATIENT
  Age: 51 Year
  Sex: Female

DRUGS (5)
  1. ZOLOFT [Suspect]
  2. GABAPENTIN [Suspect]
  3. VISTARIL [Suspect]
  4. SEROQUEL [Suspect]
     Route: 048
  5. KLONOPIN [Suspect]

REACTIONS (4)
  - DEPRESSED MOOD [None]
  - FEAR [None]
  - CHRONIC OBSTRUCTIVE PULMONARY DISEASE [None]
  - AGITATION [None]
